FAERS Safety Report 9435758 (Version 1)
Quarter: 2013Q3

REPORT INFORMATION
  Report Type: Report from Study
  Country: BW (occurrence: BW)
  Receive Date: 20130801
  Receipt Date: 20130801
  Transmission Date: 20140515
  Serious: Yes (Other)
  Sender: FDA-Public Use
  Company Number: BW-ABBOTT-13P-019-1124213-00

PATIENT
  Age: 43 Year
  Sex: Female

DRUGS (3)
  1. ALUVIA [Suspect]
     Indication: HIV INFECTION
     Dosage: 400/100 MG
     Route: 048
     Dates: start: 20130313
  2. EMTRICITABINE W/TENOFOVIR DISOPROXIL FUMARATE [Concomitant]
     Indication: HIV INFECTION
     Dosage: 200/300 MG
     Route: 048
     Dates: start: 20110818
  3. FERROUS FUMARATE W/FOLIC ACID [Concomitant]
     Indication: PRODUCT USED FOR UNKNOWN INDICATION
     Route: 048
     Dates: start: 20130313

REACTIONS (1)
  - Stillbirth [Unknown]
